FAERS Safety Report 26149667 (Version 1)
Quarter: 2025Q4

REPORT INFORMATION
  Report Type: Spontaneous
  Country: US (occurrence: US)
  Receive Date: 20251212
  Receipt Date: 20251212
  Transmission Date: 20260118
  Serious: No
  Sender: ALCON
  Company Number: US-ALCON LABORATORIES-ALC2025US005439

PATIENT
  Sex: Female

DRUGS (1)
  1. ACOLTREMON [Suspect]
     Active Substance: ACOLTREMON
     Indication: Dry eye
     Dosage: INSTILL 1 DROP INTO EACH EYE TWICE A DAY INDEFINITELY
     Route: 047
     Dates: start: 20250807

REACTIONS (4)
  - Drug ineffective [Unknown]
  - Eye pruritus [Recovered/Resolved]
  - Product packaging difficult to open [Unknown]
  - Eye pain [Recovered/Resolved]
